FAERS Safety Report 6327860-1 (Version None)
Quarter: 2009Q3

REPORT INFORMATION
  Report Type: 
  Country: None (occurrence: None)
  Receive Date: 20090824
  Receipt Date: 20090812
  Transmission Date: 20100115
  Serious: Yes (Life-Threatening)
  Sender: FDA-Public Use
  Company Number: 2008-04094

PATIENT
  Age: 56 Year
  Sex: Female
  Weight: 94 kg

DRUGS (16)
  1. VELCADE [Suspect]
     Indication: MULTIPLE MYELOMA
     Dosage: 2.6 MG, INTRAVENOUS
     Route: 042
     Dates: start: 20080229, end: 20081110
  2. CYCLOPHOSPHAMIDE [Suspect]
     Indication: MULTIPLE MYELOMA
     Dosage: 1791 MG, INTRAVENOUS
     Route: 042
     Dates: start: 20080929, end: 20081117
  3. DEXAMETHASONE [Suspect]
     Indication: MULTIPLE MYELOMA
     Dosage: 40 MG, ORAL
     Route: 048
     Dates: start: 20080929, end: 20081118
  4. DICLOFENAC SODIUM [Concomitant]
  5. ZOMETA [Concomitant]
  6. DIFLUCAN [Concomitant]
  7. VALTREX [Concomitant]
  8. COTRIM [Concomitant]
  9. CIPROFLOXACIN HCL [Concomitant]
  10. DICLOFENAC DIETHYLAMINE (DICLOFENAC DIETHYLAMINE) [Concomitant]
  11. CALCI (CALCIUM CARBONATE) [Concomitant]
  12. FOSAMAX [Concomitant]
  13. NEXIUM [Concomitant]
  14. IBUPROFEN [Concomitant]
  15. ENOXAPARIN SODIUM [Concomitant]
  16. MESNA [Concomitant]

REACTIONS (1)
  - LEUKOPENIA [None]
